FAERS Safety Report 20401895 (Version 2)
Quarter: 2022Q1

REPORT INFORMATION
  Report Type: Spontaneous
  Country: US (occurrence: US)
  Receive Date: 20220131
  Receipt Date: 20220201
  Transmission Date: 20220423
  Serious: Yes (Other)
  Sender: FDA-Public Use
  Company Number: US-ABBVIE-21K-163-4120946-00

PATIENT
  Sex: Male
  Weight: 72.640 kg

DRUGS (3)
  1. HUMIRA [Suspect]
     Active Substance: ADALIMUMAB
     Indication: Crohn^s disease
     Route: 058
     Dates: start: 2014
  2. PFIZER-BIONTECH COVID-19 VACCINE [Concomitant]
     Active Substance: TOZINAMERAN
     Indication: COVID-19 immunisation
     Dosage: 1ST DOSE
     Route: 030
     Dates: start: 20210401, end: 20210401
  3. PFIZER-BIONTECH COVID-19 VACCINE [Concomitant]
     Active Substance: TOZINAMERAN
     Dosage: 2ND DOSE
     Route: 030
     Dates: start: 20210422, end: 20210422

REACTIONS (11)
  - Tonsillitis [Recovered/Resolved]
  - Pharyngitis streptococcal [Recovered/Resolved]
  - Sinus congestion [Recovered/Resolved]
  - Hot flush [Recovered/Resolved]
  - COVID-19 [Recovered/Resolved]
  - COVID-19 [Recovered/Resolved]
  - Injection site haemorrhage [Recovering/Resolving]
  - Injection site discomfort [Recovering/Resolving]
  - Injection site pain [Recovering/Resolving]
  - Device issue [Recovered/Resolved]
  - Injection site extravasation [Recovered/Resolved]

NARRATIVE: CASE EVENT DATE: 20190101
